FAERS Safety Report 5989513-9 (Version None)
Quarter: 2008Q4

REPORT INFORMATION
  Report Type: 
  Country: None (occurrence: None)
  Receive Date: 20081210
  Receipt Date: 20081124
  Transmission Date: 20090506
  Serious: Yes (Disabling, Other)
  Sender: FDA-Public Use
  Company Number: PT-GENENTECH-267870

PATIENT
  Sex: Male

DRUGS (4)
  1. HERCEPTIN [Suspect]
     Indication: BREAST CANCER METASTATIC
     Dosage: 380 MG, 1/WEEK
     Route: 065
  2. HERCEPTIN [Suspect]
     Dosage: 380 MG, Q3W
  3. ANASTROZOLE [Concomitant]
     Indication: BREAST NEOPLASM
     Dosage: UNK
     Route: 048
     Dates: start: 20070925
  4. NAVELBINE [Concomitant]
     Indication: DRUG USE FOR UNKNOWN INDICATION
     Dosage: 90 MG, UNK
     Route: 048
     Dates: start: 20080401

REACTIONS (3)
  - BLINDNESS [None]
  - OPTIC NEURITIS [None]
  - VISUAL ACUITY REDUCED [None]
